FAERS Safety Report 11089235 (Version 5)
Quarter: 2015Q3

REPORT INFORMATION
  Report Type: Spontaneous
  Country: DE (occurrence: DE)
  Receive Date: 20150505
  Receipt Date: 20150928
  Transmission Date: 20151125
  Serious: Yes (Other)
  Sender: FDA-Public Use
  Company Number: DE-PFIZER INC-2015143109

PATIENT
  Age: 69 Year
  Sex: Female

DRUGS (3)
  1. LYRICA [Suspect]
     Active Substance: PREGABALIN
     Indication: POLYNEUROPATHY
  2. LYRICA [Suspect]
     Active Substance: PREGABALIN
     Indication: GENERALISED ANXIETY DISORDER
     Dosage: 25 MG, 2X/DAY (25 MG IN THE MORNING AND 25 MG IN THE EVENING)
     Dates: start: 201503
  3. KELTICAN FORTE [Concomitant]
     Indication: POLYNEUROPATHY
     Dosage: UNK

REACTIONS (5)
  - Coronary artery disease [Unknown]
  - Condition aggravated [Unknown]
  - Myalgia [Unknown]
  - Drug ineffective [Unknown]
  - Fluid retention [Not Recovered/Not Resolved]

NARRATIVE: CASE EVENT DATE: 201503
